FAERS Safety Report 8992572 (Version 2)
Quarter: 2013Q1

REPORT INFORMATION
  Report Type: Spontaneous
  Country: US (occurrence: US)
  Receive Date: 20130101
  Receipt Date: 20130213
  Transmission Date: 20140127
  Serious: No
  Sender: FDA-Public Use
  Company Number: US-BIOGENIDEC-2012BI064123

PATIENT
  Age: 47 Year
  Sex: Female

DRUGS (2)
  1. TYSABRI [Suspect]
     Indication: MULTIPLE SCLEROSIS
     Route: 042
     Dates: start: 20121121, end: 20121122
  2. AVONEX [Concomitant]
     Indication: MULTIPLE SCLEROSIS
     Route: 030
     Dates: start: 20060815

REACTIONS (11)
  - Hypersensitivity [Unknown]
  - Cardiac disorder [Unknown]
  - Heart rate increased [Unknown]
  - Joint swelling [Recovered/Resolved]
  - Blood pressure fluctuation [Unknown]
  - Asthma [Unknown]
  - Dizziness [Recovered/Resolved]
  - Fatigue [Recovered/Resolved]
  - Chest pain [Recovered/Resolved]
  - Oropharyngeal discomfort [Recovered/Resolved]
  - Bronchitis [Unknown]
